FAERS Safety Report 23350895 (Version 2)
Quarter: 2024Q3

REPORT INFORMATION
  Report Type: Spontaneous
  Country: CA (occurrence: CA)
  Receive Date: 20231229
  Receipt Date: 20240806
  Transmission Date: 20241017
  Serious: Yes (Other)
  Sender: ROCHE
  Company Number: CA-ROCHE-3480483

PATIENT
  Age: 74 Year
  Sex: Female

DRUGS (1)
  1. RITUXIMAB [Suspect]
     Active Substance: RITUXIMAB
     Indication: Granulomatosis with polyangiitis
     Route: 042

REACTIONS (5)
  - Immunosuppression [Recovered/Resolved]
  - Lung disorder [Recovered/Resolved]
  - Secretion discharge [Recovered/Resolved]
  - Bladder cancer [Recovered/Resolved]
  - Renal disorder [Recovered/Resolved]
